FAERS Safety Report 16892302 (Version 1)
Quarter: 2019Q4

REPORT INFORMATION
  Report Type: Spontaneous
  Country: ES (occurrence: ES)
  Receive Date: 20191007
  Receipt Date: 20191007
  Transmission Date: 20200122
  Serious: Yes (Hospitalization, Other)
  Sender: FDA-Public Use
  Company Number: ES-SA-2019SA270400

PATIENT
  Age: 8 Year
  Sex: Male
  Weight: 29 kg

DRUGS (2)
  1. CEFOTAXIME SODIUM [Suspect]
     Active Substance: CEFOTAXIME SODIUM
     Indication: OSTEOMYELITIS
     Dosage: 1 G, Q8H; 1G/8 HOURS
     Route: 042
     Dates: start: 20131028, end: 20131116
  2. CLOXACILINA [CLOXACILLIN] [Suspect]
     Active Substance: CLOXACILLIN
     Indication: OSTEOMYELITIS
     Dosage: 500 MG, Q6H; 500MG/6HOURS
     Route: 042
     Dates: start: 20131028, end: 20131116

REACTIONS (4)
  - Hypertransaminasaemia [Recovered/Resolved]
  - Drug reaction with eosinophilia and systemic symptoms [Recovered/Resolved]
  - Neutropenia [Recovered/Resolved]
  - Thrombocytopenia [Recovered/Resolved]

NARRATIVE: CASE EVENT DATE: 20131116
